FAERS Safety Report 5211011-0 (Version None)
Quarter: 2007Q1

REPORT INFORMATION
  Report Type: 
  Country: None (occurrence: None)
  Receive Date: 20070117
  Receipt Date: 20070105
  Transmission Date: 20070707
  Serious: Yes (Other)
  Sender: FDA-Public Use
  Company Number: US-PFIZER INC-2007002376

PATIENT
  Sex: Male
  Weight: 79.4 kg

DRUGS (2)
  1. DILANTIN [Suspect]
     Indication: CONVULSION
     Dosage: DAILY DOSE:800MG
  2. ZOLOFT [Suspect]

REACTIONS (3)
  - CEREBELLAR ATROPHY [None]
  - DRY MOUTH [None]
  - OSTEOPOROSIS [None]
